FAERS Safety Report 8655184 (Version 3)
Quarter: 2012Q4

REPORT INFORMATION
  Report Type: 
  Country: DE (occurrence: JP)
  Receive Date: 20120709
  Receipt Date: 20121030
  Transmission Date: 20130627
  Serious: Yes (Hospitalization)
  Sender: FDA-Public Use
  Company Number: JP-BRISTOL-MYERS SQUIBB COMPANY-16727273

PATIENT
  Age: 68 Year
  Sex: Male

DRUGS (3)
  1. ERBITUX SOLN FOR INF 5MG/ML [Suspect]
     Indication: RECTAL CANCER
     Dosage: 250mg/m2,1 in 1week, 370mg
     Route: 042
     Dates: start: 20101102, end: 20101116
  2. TS-1 [Concomitant]
     Indication: RECTAL CANCER
     Dosage: 80mg/m2
     Route: 048
     Dates: start: 20101102, end: 20101116
  3. IRINOTECAN [Concomitant]
     Indication: RECTAL CANCER
     Dosage: 150mg/m2
     Route: 041
     Dates: start: 20101102, end: 20101102

REACTIONS (3)
  - Rectal perforation [Recovered/Resolved]
  - Proctalgia [Recovered/Resolved]
  - Diarrhoea [Recovered/Resolved]
